FAERS Safety Report 21691443 (Version 1)
Quarter: 2022Q4

REPORT INFORMATION
  Report Type: Spontaneous
  Country: US (occurrence: US)
  Receive Date: 20221207
  Receipt Date: 20221207
  Transmission Date: 20230113
  Serious: No
  Sender: FDA-Public Use
  Company Number: US-ELI_LILLY_AND_COMPANY-US202212000879

PATIENT
  Age: 77 Year
  Sex: Female

DRUGS (6)
  1. ADCIRCA [Suspect]
     Active Substance: TADALAFIL
     Indication: Product used for unknown indication
     Dosage: UNK UNK, UNKNOWN
     Route: 048
  2. REMODULIN [Concomitant]
     Active Substance: TREPROSTINIL
     Indication: Product used for unknown indication
  3. TYVASO [Concomitant]
     Active Substance: TREPROSTINIL
     Indication: Product used for unknown indication
  4. ORENITRAM [Concomitant]
     Active Substance: TREPROSTINIL
     Indication: Product used for unknown indication
  5. TREPROSTINIL [Concomitant]
     Active Substance: TREPROSTINIL
     Indication: Product used for unknown indication
  6. UNITUXIN [Concomitant]
     Active Substance: DINUTUXIMAB
     Indication: Product used for unknown indication

REACTIONS (5)
  - Insomnia [Unknown]
  - Feeding disorder [Unknown]
  - Rash [Unknown]
  - Wound [Unknown]
  - Pain [Unknown]

NARRATIVE: CASE EVENT DATE: 20221124
